FAERS Safety Report 13469760 (Version 1)
Quarter: 2017Q2

REPORT INFORMATION
  Report Type: Spontaneous
  Country: BR (occurrence: BR)
  Receive Date: 20170422
  Receipt Date: 20170422
  Transmission Date: 20170830
  Serious: Yes (Hospitalization)
  Sender: FDA-Public Use
  Company Number: BR-ACCORD-050599

PATIENT
  Age: 51 Year
  Sex: Female

DRUGS (3)
  1. METHOTREXATE. [Suspect]
     Active Substance: METHOTREXATE
     Indication: RHEUMATOID ARTHRITIS
     Dosage: ONCE A WEEK FOR TWO YEARS
     Route: 030
  2. PREDNISONE/PREDNISONE ACETATE [Suspect]
     Active Substance: PREDNISONE ACETATE
     Indication: RHEUMATOID ARTHRITIS
     Dosage: DAILY FOR 5 YEARS
     Route: 048
  3. CHLOROQUINE. [Concomitant]
     Active Substance: CHLOROQUINE
     Dosage: DAILY FOR 2 YEARS
     Route: 048

REACTIONS (2)
  - Off label use [Unknown]
  - Cutaneous leishmaniasis [Recovered/Resolved]
